FAERS Safety Report 6254252-6 (Version None)
Quarter: 2009Q2

REPORT INFORMATION
  Report Type: 
  Country: None (occurrence: None)
  Receive Date: 20090630
  Receipt Date: 20090630
  Transmission Date: 20091009
  Serious: Yes (Life-Threatening, Hospitalization)
  Sender: FDA-Public Use
  Company Number: None

PATIENT
  Age: 41 Year
  Sex: Female
  Weight: 62.5964 kg

DRUGS (1)
  1. LISINOPRIL AND HYDROCHLOROTHIAZIDE [Suspect]
     Indication: HYPERTENSION
     Dosage: ONCE DAILY
     Dates: start: 20020103, end: 20090603

REACTIONS (17)
  - ABNORMAL DREAMS [None]
  - AGGRESSION [None]
  - AMNESIA [None]
  - ARTHROPOD BITE [None]
  - ASTHMA [None]
  - BURNING SENSATION [None]
  - CARDIAC ARREST [None]
  - COELIAC DISEASE [None]
  - COUGH [None]
  - DIVORCED [None]
  - HEPATIC FAILURE [None]
  - INFLUENZA LIKE ILLNESS [None]
  - LIPASE INCREASED [None]
  - LOSS OF LIBIDO [None]
  - MULTIPLE ALLERGIES [None]
  - RENAL FAILURE [None]
  - SUICIDAL IDEATION [None]
